FAERS Safety Report 7275568-0 (Version None)
Quarter: 2011Q1

REPORT INFORMATION
  Report Type: 
  Country: None (occurrence: None)
  Receive Date: 20110204
  Receipt Date: 20110120
  Transmission Date: 20110831
  Serious: Yes (Hospitalization)
  Sender: FDA-Public Use
  Company Number: US-ROCHE-757200

PATIENT
  Sex: Female
  Weight: 78.5 kg

DRUGS (3)
  1. FOSAMAX [Concomitant]
  2. NASONEX [Concomitant]
  3. XELODA [Suspect]
     Route: 048
     Dates: start: 20100701

REACTIONS (3)
  - MYALGIA [None]
  - CARBON DIOXIDE INCREASED [None]
  - OEDEMA [None]
